FAERS Safety Report 16747410 (Version 1)
Quarter: 2019Q3

REPORT INFORMATION
  Report Type: Report from Study
  Country: US (occurrence: US)
  Receive Date: 20190827
  Receipt Date: 20190827
  Transmission Date: 20191005
  Serious: Yes (Hospitalization)
  Sender: FDA-Public Use
  Company Number: US-ACTELION-A-NJ2019-194714

PATIENT
  Sex: Female

DRUGS (10)
  1. SUDAFED [Concomitant]
     Active Substance: PSEUDOEPHEDRINE HYDROCHLORIDE
     Dosage: UNK, PRN
     Route: 048
     Dates: start: 20170714
  2. ACETAMINOPHEN. [Concomitant]
     Active Substance: ACETAMINOPHEN
     Dosage: 100 MG, TID
     Route: 048
     Dates: start: 20180308
  3. GABAPENTIN. [Concomitant]
     Active Substance: GABAPENTIN
     Dosage: 500 MG, TID
     Route: 048
     Dates: start: 20180308
  4. SINGULAIR [Concomitant]
     Active Substance: MONTELUKAST SODIUM
     Dosage: UNK, QD
     Route: 048
     Dates: start: 20170714
  5. VITAMIN D3 [Concomitant]
     Active Substance: CHOLECALCIFEROL
     Dosage: UNK, QD
     Dates: start: 20170714
  6. ATIVAN [Concomitant]
     Active Substance: LORAZEPAM
     Dosage: 1.5 MG, QPM
     Route: 048
     Dates: start: 20180308
  7. IBUPROFEN. [Concomitant]
     Active Substance: IBUPROFEN
     Dosage: UNK, TID
     Route: 048
     Dates: start: 20180308
  8. FLONASE [Concomitant]
     Active Substance: FLUTICASONE PROPIONATE
     Dosage: 2 SPRAY, PRN
     Dates: start: 20170714
  9. ZAVESCA [Suspect]
     Active Substance: MIGLUSTAT
     Indication: FABRY^S DISEASE
     Dosage: 200 MG, TID
     Route: 048
     Dates: start: 20170717
  10. AFRIN [Concomitant]
     Active Substance: OXYMETAZOLINE
     Dosage: 1 SPRAY, PRN
     Dates: start: 20170714

REACTIONS (2)
  - Product dose omission [Unknown]
  - Pneumonia [Unknown]
